FAERS Safety Report 23405498 (Version 2)
Quarter: 2024Q1

REPORT INFORMATION
  Report Type: Spontaneous
  Country: DE (occurrence: DE)
  Receive Date: 20240116
  Receipt Date: 20240229
  Transmission Date: 20240410
  Serious: Yes (Other)
  Sender: FDA-Public Use
  Company Number: DE-ABBVIE-5297882

PATIENT
  Age: 46 Year
  Sex: Male

DRUGS (1)
  1. ADALIMUMAB [Suspect]
     Active Substance: ADALIMUMAB\ISOPROPYL ALCOHOL
     Indication: Product used for unknown indication
     Dosage: 40 MG, BIW (80 MG, QW)
     Route: 058
     Dates: start: 201812, end: 202211

REACTIONS (8)
  - Sepsis [Unknown]
  - Rheumatoid arthritis [Unknown]
  - Chills [Unknown]
  - Synovitis [Unknown]
  - Pyrexia [Unknown]
  - Headache [Unknown]
  - Arthritis [Unknown]
  - Oligoarthritis [Unknown]

NARRATIVE: CASE EVENT DATE: 20181201
